FAERS Safety Report 9995000 (Version 1)
Quarter: 2014Q1

REPORT INFORMATION
  Report Type: Spontaneous
  Country: GB (occurrence: GB)
  Receive Date: 20140311
  Receipt Date: 20140311
  Transmission Date: 20141002
  Serious: Yes (Hospitalization, Other)
  Sender: FDA-Public Use
  Company Number: GB-ROXANE LABORATORIES, INC.-2014-BI-09954GD

PATIENT
  Age: 22 Year
  Sex: Female

DRUGS (2)
  1. MORPHINE SULFATE [Suspect]
     Indication: ABDOMINAL PAIN
     Dosage: 40 MG
     Route: 065
  2. OXYNORM [Suspect]
     Indication: ABDOMINAL PAIN
     Dosage: 50 MG 2-4 HOURLY
     Route: 065

REACTIONS (6)
  - Abdominal pain [Unknown]
  - Intestinal obstruction [Unknown]
  - Hydronephrosis [Unknown]
  - Drug dependence [Unknown]
  - Caesarean section [None]
  - Exposure during pregnancy [None]
